FAERS Safety Report 8207701-8 (Version None)
Quarter: 2012Q1

REPORT INFORMATION
  Report Type: 
  Country: None (occurrence: None)
  Receive Date: 20120313
  Receipt Date: 20120313
  Transmission Date: 20120608
  Serious: Yes (Hospitalization)
  Sender: FDA-Public Use
  Company Number: None

PATIENT
  Sex: Female
  Weight: 62.8 kg

DRUGS (2)
  1. CARBOPLATIN [Suspect]
     Dosage: 480 MG
     Dates: end: 20120216
  2. TAXOL [Suspect]
     Dosage: 135 MG
     Dates: end: 20120223

REACTIONS (5)
  - PLATELET COUNT DECREASED [None]
  - HAEMOGLOBIN DECREASED [None]
  - WHITE BLOOD CELL COUNT DECREASED [None]
  - DIARRHOEA [None]
  - HAEMATOCHEZIA [None]
